FAERS Safety Report 7561157-7 (Version None)
Quarter: 2011Q2

REPORT INFORMATION
  Report Type: 
  Country: None (occurrence: None)
  Receive Date: 20110621
  Receipt Date: 20100809
  Transmission Date: 20111010
  Serious: No
  Sender: FDA-Public Use
  Company Number: US-ASTRAZENECA-2010SE37179

PATIENT
  Age: 4 Year
  Sex: Female
  Weight: 27.2 kg

DRUGS (1)
  1. PULMICORT [Suspect]
     Indication: ASTHMA
     Route: 055
     Dates: start: 20080101

REACTIONS (5)
  - CYSTITIS [None]
  - PYREXIA [None]
  - VOMITING [None]
  - ACNE [None]
  - RASH [None]
